FAERS Safety Report 4927637-5 (Version None)
Quarter: 2006Q1

REPORT INFORMATION
  Report Type: 
  Country: None (occurrence: None)
  Receive Date: 20060228
  Receipt Date: 20051028
  Transmission Date: 20060701
  Serious: Yes (Hospitalization, Disabling)
  Sender: FDA-Public Use
  Company Number: CA-MERCK-0511CAN00005

PATIENT
  Age: 55 Year
  Sex: Male
  Weight: 105 kg

DRUGS (5)
  1. VIOXX [Suspect]
     Indication: ARTHRITIS
     Route: 048
     Dates: start: 20010101, end: 20040101
  2. VIOXX [Suspect]
     Route: 048
     Dates: start: 20010101, end: 20010101
  3. TERBINAFINE [Concomitant]
     Indication: ONYCHOMYCOSIS
     Route: 065
     Dates: start: 20010101
  4. ATORVASTATIN CALCIUM [Concomitant]
     Indication: HYPERLIPIDAEMIA
     Route: 065
     Dates: start: 20011127
  5. ASPIRIN [Concomitant]
     Indication: MYOCARDIAL ISCHAEMIA
     Route: 065
     Dates: start: 20011127

REACTIONS (18)
  - ABDOMINAL DISTENSION [None]
  - ASTIGMATISM [None]
  - BALANITIS [None]
  - CARDIOVASCULAR DISORDER [None]
  - CHEST PAIN [None]
  - COUGH [None]
  - DIABETES MELLITUS [None]
  - DILATATION ATRIAL [None]
  - DYSPNOEA [None]
  - GASTROOESOPHAGEAL REFLUX DISEASE [None]
  - HYPERMETROPIA [None]
  - HYPERTENSION [None]
  - MYOCARDIAL ISCHAEMIA [None]
  - PHIMOSIS [None]
  - PRESBYOPIA [None]
  - TRICUSPID VALVE INCOMPETENCE [None]
  - TUBERCULIN TEST POSITIVE [None]
  - WEIGHT INCREASED [None]
